FAERS Safety Report 9452759 (Version 1)
Quarter: 2013Q3

REPORT INFORMATION
  Report Type: Spontaneous
  Country: GB (occurrence: None)
  Receive Date: 20130807
  Receipt Date: 20130807
  Transmission Date: 20140515
  Serious: Yes (Other)
  Sender: FDA-Public Use
  Company Number: 1220980

PATIENT
  Age: 72 Year
  Sex: Female

DRUGS (2)
  1. TAMOXIFEN [Suspect]
     Indication: BREAST CANCER
     Route: 048
     Dates: start: 200610, end: 2012
  2. ANTIBIOTICS [Concomitant]

REACTIONS (2)
  - Acute lymphocytic leukaemia [None]
  - Oropharyngeal pain [None]
